FAERS Safety Report 10198534 (Version 1)
Quarter: 2014Q2

REPORT INFORMATION
  Report Type: Spontaneous
  Country: US (occurrence: US)
  Receive Date: 20140527
  Receipt Date: 20140527
  Transmission Date: 20141212
  Serious: No
  Sender: FDA-Public Use
  Company Number: US-NOVEN-13US008214

PATIENT
  Age: 6 Year
  Sex: Male

DRUGS (5)
  1. DAYTRANA [Suspect]
     Indication: ATTENTION DEFICIT/HYPERACTIVITY DISORDER
     Dosage: 10 MG, UNK
     Route: 062
     Dates: start: 201311
  2. PREDNISONE [Concomitant]
     Indication: EAR TUBE INSERTION
     Dosage: UNK
     Route: 050
     Dates: start: 201311
  3. PREDNISONE [Concomitant]
     Indication: ADENOIDECTOMY
  4. IBUPROFEN [Concomitant]
     Indication: EAR TUBE INSERTION
     Dosage: UNK
     Route: 048
     Dates: start: 201311
  5. IBUPROFEN [Concomitant]
     Indication: ADENOIDECTOMY

REACTIONS (5)
  - VIIth nerve paralysis [Recovered/Resolved]
  - Feeling hot [Recovered/Resolved]
  - Paraesthesia [Recovered/Resolved]
  - Ear tube insertion [Recovered/Resolved]
  - Adenoidectomy [Recovered/Resolved]
